FAERS Safety Report 4286697-8 (Version None)
Quarter: 2004Q1

REPORT INFORMATION
  Report Type: 
  Country: None (occurrence: None)
  Receive Date: 20040204
  Receipt Date: 20040123
  Transmission Date: 20041129
  Serious: Yes (Hospitalization)
  Sender: FDA-Public Use
  Company Number: 2004-112288-NL

PATIENT
  Age: 59 Year
  Sex: Male

DRUGS (5)
  1. MIRTAZAPINE [Suspect]
     Indication: DEPRESSION
     Dosage: 30 MG/45 MG
     Dates: start: 20030401, end: 20030930
  2. MIRTAZAPINE [Suspect]
     Indication: DISEASE RECURRENCE
     Dosage: 30 MG/45 MG
     Dates: start: 20030401, end: 20030930
  3. CLOTIAPINE [Concomitant]
  4. VENLAFAXINE HYDROCHLORIDE [Suspect]
     Indication: DEPRESSION
     Dosage: 225 MG
     Dates: start: 20020401
  5. VENLAFAXINE HYDROCHLORIDE [Suspect]
     Indication: DISEASE RECURRENCE
     Dosage: 225 MG
     Dates: start: 20020401

REACTIONS (4)
  - BLOOD CHOLESTEROL INCREASED [None]
  - BLOOD TRIGLYCERIDES INCREASED [None]
  - HYPERLIPIDAEMIA [None]
  - LOW DENSITY LIPOPROTEIN INCREASED [None]
